FAERS Safety Report 19239813 (Version 5)
Quarter: 2022Q1

REPORT INFORMATION
  Report Type: Report from Study
  Country: US (occurrence: US)
  Receive Date: 20210511
  Receipt Date: 20220130
  Transmission Date: 20220424
  Serious: Yes (Hospitalization, Other)
  Sender: FDA-Public Use
  Company Number: US-ABBVIE-21K-163-3898192-00

PATIENT
  Sex: Female
  Weight: 86.260 kg

DRUGS (5)
  1. IMBRUVICA [Suspect]
     Active Substance: IBRUTINIB
     Indication: B-cell small lymphocytic lymphoma
     Route: 048
     Dates: start: 202006
  2. IMBRUVICA [Suspect]
     Active Substance: IBRUTINIB
     Route: 048
     Dates: start: 202010
  3. IMBRUVICA [Suspect]
     Active Substance: IBRUTINIB
     Route: 048
  4. IMBRUVICA [Suspect]
     Active Substance: IBRUTINIB
     Route: 048
  5. ROSUVASTATIN [Suspect]
     Active Substance: ROSUVASTATIN
     Indication: Product used for unknown indication
     Route: 065

REACTIONS (17)
  - Hypoglycaemia [Recovered/Resolved]
  - Loss of consciousness [Unknown]
  - Cholecystectomy [Unknown]
  - Renal disorder [Unknown]
  - Blood creatinine abnormal [Unknown]
  - Blood urea decreased [Unknown]
  - Glomerular filtration rate increased [Unknown]
  - Blood immunoglobulin M increased [Recovering/Resolving]
  - Muscular weakness [Unknown]
  - Cholelithiasis [Unknown]
  - Depression [Unknown]
  - Hypoglycaemia [Recovered/Resolved]
  - Blood urea increased [Recovered/Resolved]
  - Glomerular filtration rate decreased [Unknown]
  - Breast mass [Unknown]
  - Urinary tract infection [Recovered/Resolved]
  - Abdominal pain upper [Unknown]

NARRATIVE: CASE EVENT DATE: 20210101
